FAERS Safety Report 8972236 (Version 1)
Quarter: 2012Q4

REPORT INFORMATION
  Report Type: Spontaneous
  Country: US (occurrence: None)
  Receive Date: 20121217
  Receipt Date: 20121217
  Transmission Date: 20130627
  Serious: Yes (Life-Threatening, Hospitalization)
  Sender: FDA-Public Use
  Company Number: None

PATIENT
  Sex: Male
  Weight: 142.3 kg

DRUGS (1)
  1. PRADAXA [Suspect]
     Indication: ATRIAL FIBRILLATION
     Route: 002
     Dates: start: 201202, end: 20121206

REACTIONS (8)
  - Cardiac failure [None]
  - Vomiting [None]
  - International normalised ratio increased [None]
  - Dyspnoea [None]
  - Weight increased [None]
  - Dyspnoea exertional [None]
  - Wheezing [None]
  - Hypoxia [None]
